FAERS Safety Report 22123116 (Version 1)
Quarter: 2023Q1

REPORT INFORMATION
  Report Type: Spontaneous
  Country: CN (occurrence: CN)
  Receive Date: 20230322
  Receipt Date: 20230322
  Transmission Date: 20230418
  Serious: Yes (Other)
  Sender: FDA-Public Use
  Company Number: CN-009507513-2303CHN006255

PATIENT
  Age: 90 Year
  Sex: Male
  Weight: 70 kg

DRUGS (3)
  1. CILASTATIN SODIUM\IMIPENEM [Suspect]
     Active Substance: CILASTATIN SODIUM\IMIPENEM
     Indication: Pneumonia bacterial
     Dosage: 1 G, TID, IV DRIP
     Route: 041
     Dates: start: 20230225, end: 20230302
  2. ADENOSINE [Concomitant]
     Active Substance: ADENOSINE
     Indication: Angina pectoris
     Dosage: 20 MG, QD, IV DRIP; MANUFACTURER: SANCAI SHIQI PHARMACEUTICAL CO., LTD
     Route: 041
     Dates: start: 20230225, end: 20230302
  3. IRON SUCROSE INJECTION USP [Concomitant]
     Indication: Anaemia
     Dosage: 100 MCG, QD, IV DRIP; MANUFACTURER: CHENGDU TIANTAISHAN PHARMACEUTICAL CO. LTD
     Route: 041
     Dates: start: 20230225, end: 20230302

REACTIONS (2)
  - Delirium [Recovering/Resolving]
  - Dysphoria [Recovering/Resolving]

NARRATIVE: CASE EVENT DATE: 20230301
